FAERS Safety Report 8209207-9 (Version None)
Quarter: 2012Q1

REPORT INFORMATION
  Report Type: 
  Country: None (occurrence: None)
  Receive Date: 20120314
  Receipt Date: 20120306
  Transmission Date: 20120608
  Serious: Yes (Hospitalization)
  Sender: FDA-Public Use
  Company Number: GXKR2012DE001091

PATIENT

DRUGS (2)
  1. ZOPICLON [Concomitant]
     Dosage: 7.5 MG, UNK
     Route: 048
     Dates: start: 20120106
  2. SERTRALINE HYDROCHLORIDE [Suspect]
     Dosage: 25 MG, UNK
     Route: 048
     Dates: start: 20120105, end: 20120108

REACTIONS (2)
  - TORTICOLLIS [None]
  - NERVOUS SYSTEM DISORDER [None]
